FAERS Safety Report 6695433-7 (Version None)
Quarter: 2010Q2

REPORT INFORMATION
  Report Type: 
  Country: None (occurrence: None)
  Receive Date: 20100422
  Receipt Date: 20100422
  Transmission Date: 20101027
  Serious: Yes (Other)
  Sender: FDA-Public Use
  Company Number: None

PATIENT

DRUGS (2)
  1. DESIPRAMINE HCL [Suspect]
     Indication: DEPRESSION
     Dosage: 25MG 1 DAILY ORAL
     Route: 048
     Dates: start: 20100407, end: 20100412
  2. DESIPRAMINE HCL [Suspect]
     Indication: FIBROMYALGIA
     Dosage: 25MG 1 DAILY ORAL
     Route: 048
     Dates: start: 20100407, end: 20100412

REACTIONS (4)
  - DIZZINESS [None]
  - SYNCOPE [None]
  - TREMOR [None]
  - VISION BLURRED [None]
